FAERS Safety Report 5900224-8 (Version None)
Quarter: 2008Q3

REPORT INFORMATION
  Report Type: 
  Country: None (occurrence: None)
  Receive Date: 20080926
  Receipt Date: 20080922
  Transmission Date: 20090109
  Serious: Yes (Other)
  Sender: FDA-Public Use
  Company Number: US-BRISTOL-MYERS SQUIBB COMPANY-14343602

PATIENT
  Age: 16 Year
  Sex: Female

DRUGS (3)
  1. ABILIFY [Suspect]
     Indication: DEPRESSION
     Dosage: ABILIFY HAS BEEN STOPPED SEVERAL TIMES BEFORE AUG-2008
     Dates: start: 20080701
  2. EFFEXOR XR [Concomitant]
  3. XANAX [Concomitant]

REACTIONS (1)
  - TUBERCULOSIS [None]
